FAERS Safety Report 7364852 (Version 3)
Quarter: 2012Q4

REPORT INFORMATION
  Report Type: 
  Country: CA (occurrence: CA)
  Receive Date: 20100423
  Receipt Date: 20121205
  Transmission Date: 20130627
  Serious: Yes (Other)
  Sender: FDA-Public Use
  Company Number: CA-ABBOTT-10P-028-0639925-00

PATIENT
  Age: 61 Year
  Sex: Female

DRUGS (12)
  1. BIAXIN [Suspect]
     Indication: PRODUCT USED FOR UNKNOWN INDICATION
     Dates: start: 20091112
  2. RITUXAN [Suspect]
     Indication: NON-HODGKIN^S LYMPHOMA
     Route: 042
     Dates: start: 200711, end: 200911
  3. CHOP [Concomitant]
     Indication: NON-HODGKIN^S LYMPHOMA
     Dates: start: 200711, end: 2008
  4. CLAVULIN [Concomitant]
     Indication: PRODUCT USED FOR UNKNOWN INDICATION
     Dates: start: 2009
  5. CALCIUM [Concomitant]
     Indication: PRODUCT USED FOR UNKNOWN INDICATION
  6. VITAMIN D [Concomitant]
     Indication: PRODUCT USED FOR UNKNOWN INDICATION
  7. CALCIUM [Concomitant]
     Indication: PRODUCT USED FOR UNKNOWN INDICATION
  8. DOXORUBICIN HYDROCHLORIDE [Concomitant]
     Indication: CHEMOTHERAPY
  9. PREDNISONE [Concomitant]
     Indication: CHEMOTHERAPY
  10. RITUXAN [Concomitant]
     Indication: PRODUCT USED FOR UNKNOWN INDICATION
  11. VINCRISTIN SULFATE [Concomitant]
     Indication: PRODUCT USED FOR UNKNOWN INDICATION
  12. CYCLOPHOSPHAMIDE [Concomitant]
     Indication: CHEMOTHERAPY

REACTIONS (3)
  - Deafness [Unknown]
  - Sudden hearing loss [Unknown]
  - Oedema peripheral [Unknown]
